FAERS Safety Report 15637029 (Version 4)
Quarter: 2019Q2

REPORT INFORMATION
  Report Type: Report from Study
  Country: CO (occurrence: CO)
  Receive Date: 20181120
  Receipt Date: 20190602
  Transmission Date: 20190711
  Serious: No
  Sender: FDA-Public Use
  Company Number: CO-INCYTE CORPORATION-2018IN011769

PATIENT

DRUGS (2)
  1. JAKAVI [Suspect]
     Active Substance: RUXOLITINIB
     Indication: MYELOFIBROSIS
     Dosage: 30 MG, QD
     Route: 048
     Dates: start: 20181103
  2. JAKAVI [Suspect]
     Active Substance: RUXOLITINIB
     Dosage: 30 MG, (MG ONE DAY YES AND ONE DAY NOT) QOD
     Route: 048

REACTIONS (13)
  - Discharge [Unknown]
  - Rash [Unknown]
  - Abdominal discomfort [Unknown]
  - Eye disorder [Unknown]
  - Yellow skin [Unknown]
  - Dizziness [Recovered/Resolved]
  - Somnolence [Unknown]
  - Secretion discharge [Recovered/Resolved]
  - Decreased appetite [Unknown]
  - Influenza [Recovered/Resolved]
  - Inappropriate schedule of product administration [Unknown]
  - Feeling abnormal [Unknown]
  - Aphonia [Recovered/Resolved]

NARRATIVE: CASE EVENT DATE: 20181119
